FAERS Safety Report 4666706-4 (Version None)
Quarter: 2005Q2

REPORT INFORMATION
  Report Type: 
  Country: None (occurrence: None)
  Receive Date: 20050518
  Receipt Date: 20050502
  Transmission Date: 20051028
  Serious: Yes (Hospitalization)
  Sender: FDA-Public Use
  Company Number: 214518

PATIENT
  Age: 63 Year
  Sex: Female

DRUGS (2)
  1. BEVACIZUMAB PWDR + SOLVENT,INFUSION SOLN, 100MG [Suspect]
     Indication: BREAST CANCER METASTATIC
     Dosage: 10 MG/KG, Q2W, INTRAVENOUS
     Route: 042
     Dates: start: 20040503, end: 20050322
  2. PACLITAXEL [Suspect]
     Indication: BREAST CANCER METASTATIC
     Dosage: 90 MG/M2, 1/WEEK, INTRAVENOUS
     Route: 042
     Dates: start: 20040503

REACTIONS (19)
  - ABDOMINAL PAIN UPPER [None]
  - CONSTIPATION [None]
  - COORDINATION ABNORMAL [None]
  - DEHYDRATION [None]
  - DIZZINESS [None]
  - DYSPEPSIA [None]
  - FATIGUE [None]
  - GASTROOESOPHAGEAL REFLUX DISEASE [None]
  - HYPERGLYCAEMIA [None]
  - HYPERTENSION [None]
  - HYPOCALCAEMIA [None]
  - HYPONATRAEMIA [None]
  - HYPOTENSION [None]
  - LEUKOPENIA [None]
  - MUSCULAR WEAKNESS [None]
  - NAUSEA [None]
  - PERIPHERAL SENSORY NEUROPATHY [None]
  - SINUS TACHYCARDIA [None]
  - SYNCOPE [None]
